FAERS Safety Report 8077306-0 (Version None)
Quarter: 2012Q1

REPORT INFORMATION
  Report Type: 
  Country: None (occurrence: None)
  Receive Date: 20120127
  Receipt Date: 20120120
  Transmission Date: 20120608
  Serious: Yes (Hospitalization)
  Sender: FDA-Public Use
  Company Number: US-JNJFOC-20110709407

PATIENT
  Age: 25 Year
  Sex: Male

DRUGS (2)
  1. STELARA [Suspect]
     Indication: PSORIASIS
     Route: 058
     Dates: start: 20110603
  2. STELARA [Suspect]
     Route: 058
     Dates: start: 20110505

REACTIONS (5)
  - BALANCE DISORDER [None]
  - MUSCULAR WEAKNESS [None]
  - GAIT DISTURBANCE [None]
  - CONFUSIONAL STATE [None]
  - MEMORY IMPAIRMENT [None]
